FAERS Safety Report 10255719 (Version 2)
Quarter: 2014Q2

REPORT INFORMATION
  Report Type: Spontaneous
  Country: DE (occurrence: DE)
  Receive Date: 20140624
  Receipt Date: 20140630
  Transmission Date: 20141212
  Serious: Yes (Hospitalization, Disabling)
  Sender: FDA-Public Use
  Company Number: DE-SA-2014SA079052

PATIENT
  Age: 31 Year
  Sex: Male

DRUGS (2)
  1. AUBAGIO [Suspect]
     Indication: MULTIPLE SCLEROSIS
     Route: 048
     Dates: start: 20131002
  2. TETRAHYDROCANNABINOL [Concomitant]

REACTIONS (5)
  - Mania [Not Recovered/Not Resolved]
  - Flight of ideas [Not Recovered/Not Resolved]
  - Restlessness [Not Recovered/Not Resolved]
  - Thinking abnormal [Not Recovered/Not Resolved]
  - Abnormal behaviour [Not Recovered/Not Resolved]
